FAERS Safety Report 8318033-1 (Version None)
Quarter: 2012Q2

REPORT INFORMATION
  Report Type: 
  Country: None (occurrence: None)
  Receive Date: 20120427
  Receipt Date: 20120420
  Transmission Date: 20120825
  Serious: Yes (Death, Life-Threatening, Hospitalization, Other)
  Sender: FDA-Public Use
  Company Number: MX-SANOFI-AVENTIS-2012SA016850

PATIENT
  Age: 50 Year
  Sex: Female

DRUGS (15)
  1. TAXOTERE [Suspect]
     Route: 042
     Dates: start: 20120113, end: 20120113
  2. TRASTUZUMAB [Concomitant]
     Route: 042
     Dates: start: 20120124, end: 20120124
  3. TAXOTERE [Suspect]
     Indication: BREAST CANCER STAGE III
     Route: 042
     Dates: start: 20111213, end: 20111213
  4. TAXOTERE [Suspect]
     Route: 042
     Dates: start: 20120214, end: 20120214
  5. TRASTUZUMAB [Concomitant]
     Route: 042
     Dates: start: 20120214, end: 20120214
  6. RANITIDINE [Concomitant]
     Indication: PREMEDICATION
  7. GRANISETRON [Concomitant]
     Indication: PREMEDICATION
  8. ADRIAMYCIN PFS [Concomitant]
     Indication: BREAST CANCER
     Route: 042
  9. DIPHENHYDRAMINE HCL [Concomitant]
     Indication: PREMEDICATION
  10. CYCLOPHOSPHAMIDE [Concomitant]
     Indication: BREAST CANCER
     Route: 042
  11. TRASTUZUMAB [Concomitant]
     Route: 042
     Dates: start: 20111213, end: 20111213
  12. TRASTUZUMAB [Concomitant]
     Route: 042
     Dates: start: 20120113, end: 20120113
  13. TAXOTERE [Suspect]
     Route: 042
     Dates: start: 20120124, end: 20120124
  14. DEXAMETHASONE [Concomitant]
     Indication: PREMEDICATION
  15. EPIRUBICIN [Concomitant]
     Indication: BREAST CANCER
     Route: 042

REACTIONS (7)
  - DYSPNOEA [None]
  - PULMONARY FUNCTION TEST ABNORMAL [None]
  - LUNG INFILTRATION [None]
  - DEATH [None]
  - ORTHOPNOEA [None]
  - PRODUCTIVE COUGH [None]
  - PNEUMONITIS [None]
